FAERS Safety Report 7125816-2 (Version None)
Quarter: 2010Q4

REPORT INFORMATION
  Report Type: 
  Country: None (occurrence: None)
  Receive Date: 20101112
  Receipt Date: 20101019
  Transmission Date: 20110411
  Serious: Yes (Other)
  Sender: FDA-Public Use
  Company Number: 10-422

PATIENT
  Age: 21 Year
  Sex: Male

DRUGS (3)
  1. IBUPROFEN [Suspect]
     Dosage: 2400-3200 MG, ONCE, ORAL
     Route: 048
     Dates: start: 20080128
  2. SUDAFED NON DROWSY, 60 MG [Suspect]
     Dosage: 480-720 MG, ONCE, ORAL
     Route: 048
     Dates: start: 20080128
  3. 3-4 ^ANTIHISTAMINES^ [Concomitant]

REACTIONS (6)
  - ALCOHOL POISONING [None]
  - DEHYDRATION [None]
  - DEPRESSION [None]
  - MULTIPLE DRUG OVERDOSE INTENTIONAL [None]
  - SUICIDAL IDEATION [None]
  - TACHYCARDIA [None]
